FAERS Safety Report 13424878 (Version 2)
Quarter: 2017Q2

REPORT INFORMATION
  Report Type: Spontaneous
  Country: US (occurrence: US)
  Receive Date: 20170410
  Receipt Date: 20170531
  Transmission Date: 20170830
  Serious: Yes (Other)
  Sender: FDA-Public Use
  Company Number: US-ALLERGAN-1713571US

PATIENT
  Age: 75 Year
  Sex: Female
  Weight: 92.52 kg

DRUGS (14)
  1. LINZESS [Suspect]
     Active Substance: LINACLOTIDE
     Dosage: 145 ?G, QD
     Dates: start: 20170425
  2. BENTYL [Concomitant]
     Active Substance: DICYCLOMINE HYDROCHLORIDE
     Dosage: 20 MG, QID
     Dates: start: 20160826
  3. LIBRAX [Concomitant]
     Active Substance: CHLORDIAZEPOXIDE HYDROCHLORIDE\CLIDINIUM BROMIDE
     Dosage: 2.5 MG, QID, PRN
  4. XIFAXAN [Concomitant]
     Active Substance: RIFAXIMIN
     Dosage: 550 MG, TID
  5. KLOR-CON [Concomitant]
     Active Substance: POTASSIUM CHLORIDE
     Dosage: 20 MEQ, BID
     Dates: start: 20140624
  6. LINZESS [Suspect]
     Active Substance: LINACLOTIDE
     Indication: PRODUCT USED FOR UNKNOWN INDICATION
     Dosage: 145 ?G, QD
  7. WARFARIN [Concomitant]
     Active Substance: WARFARIN
     Dosage: 4 MG, QD
     Dates: start: 20140826
  8. ATENOLOL. [Concomitant]
     Active Substance: ATENOLOL
     Dosage: 100 MG, QD
     Dates: start: 20140108
  9. OMEPRAZOLE. [Concomitant]
     Active Substance: OMEPRAZOLE
     Dosage: 40 MG, BID
     Dates: start: 20160405
  10. BENAZEPRIL [Concomitant]
     Active Substance: BENAZEPRIL HYDROCHLORIDE
     Dosage: 40 MG, QD
     Dates: start: 20140108
  11. FUROSEMIDE. [Concomitant]
     Active Substance: FUROSEMIDE
     Dosage: 80 MG, BID
     Dates: start: 20140624
  12. OMEPRAZOLE. [Concomitant]
     Active Substance: OMEPRAZOLE
     Dosage: 40 MG, BID
     Dates: start: 20170509
  13. ROPINIROLE. [Concomitant]
     Active Substance: ROPINIROLE
     Dosage: 2 MG, QHS
     Dates: start: 20140108
  14. PROPAFENONE. [Concomitant]
     Active Substance: PROPAFENONE
     Dosage: 225 MG, BID
     Dates: start: 20140624

REACTIONS (6)
  - Nausea [Unknown]
  - Diarrhoea [Unknown]
  - Gastrooesophageal reflux disease [Unknown]
  - Abdominal pain [Unknown]
  - Fibromyalgia [Unknown]
  - Arthropathy [Unknown]

NARRATIVE: CASE EVENT DATE: 201703
